FAERS Safety Report 12291202 (Version 1)
Quarter: 2016Q2

REPORT INFORMATION
  Report Type: Spontaneous
  Country: ES (occurrence: ES)
  Receive Date: 20160421
  Receipt Date: 20160421
  Transmission Date: 20160815
  Serious: Yes (Hospitalization)
  Sender: FDA-Public Use
  Company Number: ES-UNICHEM LABORATORIES LIMITED-UCM201501-000022

PATIENT
  Age: 47 Year
  Sex: Male

DRUGS (3)
  1. CLOBAZAM [Concomitant]
     Active Substance: CLOBAZAM
  2. LAMOTRIGINE. [Suspect]
     Active Substance: LAMOTRIGINE
  3. PHENYTOIN. [Suspect]
     Active Substance: PHENYTOIN

REACTIONS (3)
  - Drug reaction with eosinophilia and systemic symptoms [Unknown]
  - Renal failure [Recovering/Resolving]
  - Hepatic failure [Recovering/Resolving]
